FAERS Safety Report 5246807-2 (Version None)
Quarter: 2007Q1

REPORT INFORMATION
  Report Type: 
  Country: None (occurrence: None)
  Receive Date: 20070226
  Receipt Date: 20070212
  Transmission Date: 20070707
  Serious: Yes (Hospitalization)
  Sender: FDA-Public Use
  Company Number: US-SHR-US-2006-028987

PATIENT
  Age: 41 Year
  Sex: Male

DRUGS (4)
  1. BETASERON [Suspect]
     Indication: MULTIPLE SCLEROSIS
     Dosage: 8 MIU, EVERY 2D
     Route: 058
     Dates: start: 20060831, end: 20061003
  2. B12 [Concomitant]
  3. NEURONTIN [Concomitant]
  4. ZANAFLEX [Concomitant]

REACTIONS (6)
  - ASTHENIA [None]
  - BACK PAIN [None]
  - DIARRHOEA [None]
  - INFLUENZA LIKE ILLNESS [None]
  - MUSCLE SPASMS [None]
  - TREMOR [None]
